FAERS Safety Report 26138071 (Version 1)
Quarter: 2025Q4

REPORT INFORMATION
  Report Type: Spontaneous
  Country: AU (occurrence: AU)
  Receive Date: 20251210
  Receipt Date: 20251210
  Transmission Date: 20260118
  Serious: Yes (Hospitalization)
  Sender: Haleon PLC
  Company Number: AU-HALEON-2276106

PATIENT
  Age: 19 Year
  Sex: Female
  Weight: 60 kg

DRUGS (2)
  1. ACETAMINOPHEN [Suspect]
     Active Substance: ACETAMINOPHEN
     Indication: Product used for unknown indication
     Dosage: MODIFIED-RELEASE
  2. IBUPROFEN [Suspect]
     Active Substance: IBUPROFEN
     Indication: Product used for unknown indication

REACTIONS (3)
  - Bezoar [Recovered/Resolved]
  - Overdose [Unknown]
  - Vomiting [Recovered/Resolved]
